FAERS Safety Report 12318667 (Version 2)
Quarter: 2017Q1

REPORT INFORMATION
  Report Type: Spontaneous
  Country: US (occurrence: US)
  Receive Date: 20160429
  Receipt Date: 20170119
  Transmission Date: 20170428
  Serious: Yes (Other)
  Sender: FDA-Public Use
  Company Number: US-BAYER-2016-080443

PATIENT
  Age: 32 Year
  Sex: Female
  Weight: 96.15 kg

DRUGS (5)
  1. MIRENA [Suspect]
     Active Substance: LEVONORGESTREL
     Dosage: 20 MCG/24HR, CONT
     Route: 015
     Dates: start: 20090423, end: 20140618
  2. VITAMIN D3 [Concomitant]
     Active Substance: CHOLECALCIFEROL
  3. ONDANSETRON [Concomitant]
     Active Substance: ONDANSETRON
  4. PRILOSEC [Concomitant]
     Active Substance: OMEPRAZOLE MAGNESIUM
  5. SUMATRIPTAN. [Concomitant]
     Active Substance: SUMATRIPTAN

REACTIONS (8)
  - Nausea [None]
  - Dizziness [None]
  - Papilloedema [None]
  - Cluster headache [None]
  - Visual impairment [None]
  - Device use issue [None]
  - Benign intracranial hypertension [None]
  - Vision blurred [None]

NARRATIVE: CASE EVENT DATE: 201403
